FAERS Safety Report 9429183 (Version 1)
Quarter: 2013Q3

REPORT INFORMATION
  Report Type: Report from Study
  Country: US (occurrence: US)
  Receive Date: 20130730
  Receipt Date: 20130730
  Transmission Date: 20140515
  Serious: Yes (Other)
  Sender: FDA-Public Use
  Company Number: US-BAYER-2013-089492

PATIENT
  Age: 49 Year
  Sex: Female

DRUGS (1)
  1. BETASERON [Suspect]
     Indication: CLINICALLY ISOLATED SYNDROME
     Dosage: 8 MIU, QOD
     Route: 058
     Dates: start: 20130607

REACTIONS (5)
  - Loss of consciousness [Recovered/Resolved]
  - Injection site pain [Recovered/Resolved]
  - Dyspnoea [Recovered/Resolved]
  - Eye movement disorder [Recovered/Resolved]
  - Pre-existing condition improved [None]
